FAERS Safety Report 22315830 (Version 1)
Quarter: 2023Q2

REPORT INFORMATION
  Report Type: Spontaneous
  Country: DE (occurrence: DE)
  Receive Date: 20230512
  Receipt Date: 20230512
  Transmission Date: 20230721
  Serious: Yes (Other)
  Sender: FDA-Public Use
  Company Number: DE-002147023-NVSC2023DE104107

PATIENT
  Sex: Female

DRUGS (7)
  1. PREDNISOLONE [Suspect]
     Active Substance: PREDNISOLONE
     Indication: Graft versus host disease
     Dosage: UNK
     Route: 065
     Dates: start: 2022
  2. CYTARABINE [Concomitant]
     Active Substance: CYTARABINE
     Indication: Acute myeloid leukaemia
     Dosage: 2 TIMES, QD FOR 3 HOURS (DAY 1, 3 AND 5)
     Route: 065
     Dates: start: 20220422
  3. DIMETHINDENE [Concomitant]
     Active Substance: DIMETHINDENE
     Indication: Hypersensitivity
     Dosage: UNK
     Route: 065
     Dates: start: 20220113
  4. LENOGRASTIM [Concomitant]
     Active Substance: LENOGRASTIM
     Indication: Platelet count decreased
     Dosage: UNK
     Route: 065
     Dates: start: 2022
  5. LENOGRASTIM [Concomitant]
     Active Substance: LENOGRASTIM
     Indication: White blood cell count decreased
  6. MYLOTARG [Concomitant]
     Active Substance: GEMTUZUMAB OZOGAMICIN
     Indication: Acute myeloid leukaemia
     Dosage: UNK (ON DAY 1, 4 AND 7)
     Dates: start: 20220113
  7. METOCLOPRAMIDE [Concomitant]
     Active Substance: METOCLOPRAMIDE
     Indication: Vomiting
     Dosage: UNK
     Route: 065
     Dates: start: 2022

REACTIONS (1)
  - Blood glucose increased [Unknown]

NARRATIVE: CASE EVENT DATE: 20220901
